FAERS Safety Report 5515277-9 (Version None)
Quarter: 2007Q4

REPORT INFORMATION
  Report Type: 
  Country: None (occurrence: None)
  Receive Date: 20071113
  Receipt Date: 20071108
  Transmission Date: 20080405
  Serious: Yes (Life-Threatening, Hospitalization)
  Sender: FDA-Public Use
  Company Number: IT-ALLERGAN-0711842US

PATIENT
  Sex: Female

DRUGS (1)
  1. VISTABEX [Suspect]
     Indication: MUSCLE RELAXANT THERAPY
     Dosage: 50 UNITS, SINGLE
     Dates: start: 20070528, end: 20070528

REACTIONS (19)
  - ASTHENIA [None]
  - BLOOD IRON INCREASED [None]
  - BONE PAIN [None]
  - BRONCHIAL DISORDER [None]
  - DERMATOMYOSITIS [None]
  - DYSPHAGIA [None]
  - DYSPNOEA [None]
  - ERYTHEMA MULTIFORME [None]
  - FACE OEDEMA [None]
  - LEUKOPENIA [None]
  - MYALGIA [None]
  - PRURITUS [None]
  - PYREXIA [None]
  - RASH GENERALISED [None]
  - RED BLOOD CELL SEDIMENTATION RATE INCREASED [None]
  - SKIN DISORDER [None]
  - SPEECH DISORDER [None]
  - SPLENOMEGALY [None]
  - TOXIC EPIDERMAL NECROLYSIS [None]
